FAERS Safety Report 6165273-6 (Version None)
Quarter: 2009Q2

REPORT INFORMATION
  Report Type: 
  Country: None (occurrence: None)
  Receive Date: 20090423
  Receipt Date: 20090416
  Transmission Date: 20091009
  Serious: Yes (Death, Hospitalization)
  Sender: FDA-Public Use
  Company Number: A0780158A

PATIENT
  Age: 38 Year
  Sex: Male

DRUGS (4)
  1. ADVAIR HFA [Suspect]
     Indication: ASTHMA
     Dosage: 1PUFF TWICE PER DAY
     Route: 055
     Dates: start: 20040601
  2. PREDNISONE [Concomitant]
  3. ALBUTEROL [Concomitant]
  4. ATROVENT [Concomitant]

REACTIONS (1)
  - ASTHMA [None]
